FAERS Safety Report 14578225 (Version 1)
Quarter: 2018Q1

REPORT INFORMATION
  Report Type: Spontaneous
  Country: FR (occurrence: FR)
  Receive Date: 20180227
  Receipt Date: 20180227
  Transmission Date: 20180509
  Serious: Yes (Hospitalization)
  Sender: FDA-Public Use
  Company Number: FR-SA-2018SA045962

PATIENT
  Age: 44 Year
  Sex: Male

DRUGS (8)
  1. CLAFORAN [Suspect]
     Active Substance: CEFOTAXIME SODIUM
     Route: 065
     Dates: start: 20170609, end: 20170704
  2. TRUVADA [Concomitant]
     Active Substance: EMTRICITABINE\TENOFOVIR DISOPROXIL FUMARATE
     Indication: HIV INFECTION
     Route: 065
  3. BISOPROLOL [Concomitant]
     Active Substance: BISOPROLOL
     Route: 065
  4. VANCOMYCINE [Suspect]
     Active Substance: VANCOMYCIN
     Route: 042
     Dates: start: 20170609, end: 20170704
  5. SKENAN [Suspect]
     Active Substance: MORPHINE SULFATE
     Route: 065
     Dates: start: 20170601
  6. VIRAMUNE [Concomitant]
     Active Substance: NEVIRAPINE
     Indication: HIV INFECTION
     Route: 065
  7. KARDEGIC [Concomitant]
     Active Substance: ASPIRIN DL-LYSINE
     Dosage: STRENGTH: 75 MG?FORM:  POWDER FOR ORAL SOLUTION IN SACHET-DOSE
     Route: 048
  8. TELMISARTAN. [Concomitant]
     Active Substance: TELMISARTAN
     Route: 065

REACTIONS (2)
  - Toxic skin eruption [Recovered/Resolved]
  - Pyrexia [Recovered/Resolved]

NARRATIVE: CASE EVENT DATE: 20170630
